FAERS Safety Report 9094407 (Version 1)
Quarter: 2013Q1

REPORT INFORMATION
  Report Type: Spontaneous
  Country: FR (occurrence: FR)
  Receive Date: 20130218
  Receipt Date: 20130218
  Transmission Date: 20140127
  Serious: Yes (Other)
  Sender: FDA-Public Use
  Company Number: FR-TEVA-386058ISR

PATIENT
  Sex: Female
  Weight: 60 kg

DRUGS (3)
  1. COPAXONE [Suspect]
     Dates: start: 2005
  2. SPAGULAX [Concomitant]
     Dates: start: 2005, end: 20120308
  3. LEVOTHYROX [Concomitant]
     Indication: AUTOIMMUNE THYROIDITIS

REACTIONS (1)
  - Abortion spontaneous [Unknown]
